FAERS Safety Report 8816991 (Version 1)
Quarter: 2012Q4

REPORT INFORMATION
  Report Type: Spontaneous
  Country: US (occurrence: None)
  Receive Date: 20121002
  Receipt Date: 20121002
  Transmission Date: 20130627
  Serious: Yes (Life-Threatening, Hospitalization)
  Sender: FDA-Public Use
  Company Number: None

PATIENT
  Age: 60 Year
  Sex: Male

DRUGS (1)
  1. MIDAZOLAM [Suspect]
     Indication: SURGERY
     Route: 042
     Dates: start: 20120614, end: 20120614

REACTIONS (6)
  - Tachycardia [None]
  - Respiratory failure [None]
  - Bronchospasm [None]
  - Injury [None]
  - Respiratory depression [None]
  - Laryngospasm [None]
